FAERS Safety Report 8528397-1 (Version None)
Quarter: 2012Q3

REPORT INFORMATION
  Report Type: 
  Country: None (occurrence: None)
  Receive Date: 20120722
  Receipt Date: 20120717
  Transmission Date: 20120928
  Serious: Yes (Other)
  Sender: FDA-Public Use
  Company Number: PHHY2012NL061256

PATIENT
  Sex: Female
  Weight: 75 kg

DRUGS (8)
  1. AMOXICILLIN AND CLAVULANATE POTASSIUM [Suspect]
     Indication: CELLULITIS
     Dosage: UNK
     Route: 042
     Dates: start: 20120628
  2. METOPROLOL SUCCINATE [Concomitant]
     Dosage: 1 DF, QD
     Dates: start: 19960101, end: 20120707
  3. CLINDAMYCIN [Suspect]
     Indication: CELLULITIS
     Dosage: UNK
     Dates: start: 20120604, end: 20120707
  4. TRAMADOL HCL [Concomitant]
     Dosage: 3 DF, UNK
     Dates: start: 20120628, end: 20120707
  5. ACETAMINOPHEN [Concomitant]
     Dosage: UNK
     Dates: start: 20120628, end: 20120707
  6. SIMVASTATIN [Concomitant]
     Dosage: 1 DF, QD
     Dates: start: 19960101, end: 20120707
  7. ENALAPRIL MALEATE [Concomitant]
     Dosage: 1 DF, QD
     Dates: start: 19960101, end: 20120707
  8. ACENOCOUMAROL [Concomitant]
     Dosage: 1 MG, UNK
     Dates: end: 20120707

REACTIONS (4)
  - DRUG RASH WITH EOSINOPHILIA AND SYSTEMIC SYMPTOMS [None]
  - EOSINOPHILIA [None]
  - C-REACTIVE PROTEIN INCREASED [None]
  - HEPATITIS CHOLESTATIC [None]
